FAERS Safety Report 16659908 (Version 1)
Quarter: 2019Q3

REPORT INFORMATION
  Report Type: Spontaneous
  Country: CN (occurrence: CN)
  Receive Date: 20190802
  Receipt Date: 20190802
  Transmission Date: 20191004
  Serious: Yes (Death)
  Sender: FDA-Public Use
  Company Number: CN-ROCHE-2367864

PATIENT
  Age: 46 Year
  Sex: Female

DRUGS (25)
  1. AVASTIN [Suspect]
     Active Substance: BEVACIZUMAB
     Indication: ADENOCARCINOMA OF COLON
     Route: 065
     Dates: start: 20130828, end: 20131224
  2. AVASTIN [Suspect]
     Active Substance: BEVACIZUMAB
     Indication: METASTASES TO LUNG
     Route: 065
     Dates: start: 201508, end: 201512
  3. OXALIPLATIN. [Concomitant]
     Active Substance: OXALIPLATIN
     Indication: METASTASES TO OVARY
  4. CALCIUM FOLINATE [Concomitant]
     Active Substance: LEUCOVORIN CALCIUM
     Indication: METASTASES TO OVARY
  5. AVASTIN [Suspect]
     Active Substance: BEVACIZUMAB
     Indication: METASTASES TO OVARY
     Route: 065
     Dates: start: 201602, end: 201604
  6. OXALIPLATIN. [Concomitant]
     Active Substance: OXALIPLATIN
     Indication: METASTASES TO LIVER
     Route: 065
     Dates: start: 20161202, end: 20161216
  7. CALCIUM FOLINATE [Concomitant]
     Active Substance: LEUCOVORIN CALCIUM
     Indication: ADENOCARCINOMA OF COLON
     Route: 065
     Dates: start: 20130828, end: 20131224
  8. FLUOROURACIL. [Concomitant]
     Active Substance: FLUOROURACIL
     Indication: METASTASES TO LIVER
     Route: 065
     Dates: start: 201312, end: 201508
  9. CETUXIMAB. [Concomitant]
     Active Substance: CETUXIMAB
     Indication: METASTASES TO LIVER
  10. AVASTIN [Suspect]
     Active Substance: BEVACIZUMAB
     Indication: METASTASES TO LIVER
     Route: 065
     Dates: start: 201312, end: 201508
  11. FLUOROURACIL. [Concomitant]
     Active Substance: FLUOROURACIL
     Indication: ADENOCARCINOMA OF COLON
     Route: 065
     Dates: start: 20130828, end: 20131224
  12. FLUOROURACIL. [Concomitant]
     Active Substance: FLUOROURACIL
     Indication: METASTASES TO OVARY
     Route: 065
     Dates: start: 201602, end: 201604
  13. CALCIUM FOLINATE [Concomitant]
     Active Substance: LEUCOVORIN CALCIUM
     Indication: METASTASES TO LUNG
     Route: 065
     Dates: start: 20161202, end: 20161216
  14. FLUOROURACIL. [Concomitant]
     Active Substance: FLUOROURACIL
     Indication: METASTASES TO LUNG
     Route: 065
     Dates: start: 201508, end: 201512
  15. FLUOROURACIL. [Concomitant]
     Active Substance: FLUOROURACIL
     Route: 065
     Dates: start: 20161202, end: 20161216
  16. IRINOTECAN HYDROCHLORIDE. [Concomitant]
     Active Substance: IRINOTECAN HYDROCHLORIDE
     Indication: METASTASES TO OVARY
  17. OXALIPLATIN. [Concomitant]
     Active Substance: OXALIPLATIN
     Indication: ADENOCARCINOMA OF COLON
     Route: 065
     Dates: start: 20130828, end: 20131224
  18. CALCIUM FOLINATE [Concomitant]
     Active Substance: LEUCOVORIN CALCIUM
     Indication: METASTASES TO LIVER
     Route: 065
     Dates: start: 201508, end: 201512
  19. IRINOTECAN HYDROCHLORIDE. [Concomitant]
     Active Substance: IRINOTECAN HYDROCHLORIDE
     Indication: METASTASES TO LIVER
     Route: 065
     Dates: start: 201605, end: 201611
  20. IRINOTECAN HYDROCHLORIDE. [Concomitant]
     Active Substance: IRINOTECAN HYDROCHLORIDE
     Indication: METASTASES TO LUNG
  21. CETUXIMAB. [Concomitant]
     Active Substance: CETUXIMAB
     Indication: METASTASES TO OVARY
  22. OXALIPLATIN. [Concomitant]
     Active Substance: OXALIPLATIN
     Indication: METASTASES TO LUNG
  23. IRINOTECAN HYDROCHLORIDE. [Concomitant]
     Active Substance: IRINOTECAN HYDROCHLORIDE
     Indication: ADENOCARCINOMA OF COLON
     Route: 065
     Dates: start: 201508, end: 201512
  24. CETUXIMAB. [Concomitant]
     Active Substance: CETUXIMAB
     Indication: ADENOCARCINOMA OF COLON
     Route: 065
     Dates: start: 201605, end: 201611
  25. CETUXIMAB. [Concomitant]
     Active Substance: CETUXIMAB
     Indication: METASTASES TO LUNG

REACTIONS (6)
  - Death [Fatal]
  - Palmar-plantar erythrodysaesthesia syndrome [Unknown]
  - Palpitations [Unknown]
  - Back pain [Unknown]
  - Chest discomfort [Unknown]
  - Rash [Unknown]

NARRATIVE: CASE EVENT DATE: 201702
